FAERS Safety Report 23261562 (Version 1)
Quarter: 2023Q4

REPORT INFORMATION
  Report Type: Spontaneous
  Country: DE (occurrence: DE)
  Receive Date: 20231205
  Receipt Date: 20231205
  Transmission Date: 20240110
  Serious: Yes (Hospitalization)
  Sender: FDA-Public Use
  Company Number: None

PATIENT
  Age: 40 Year
  Sex: Female
  Weight: 62 kg

DRUGS (1)
  1. AIMOVIG [Suspect]
     Active Substance: ERENUMAB-AOOE
     Indication: Migraine
     Dosage: 140 MG, Q4W (140MG ALLE 4 WOCHEN)
     Route: 058
     Dates: start: 202211

REACTIONS (3)
  - Abnormal faeces [Not Recovered/Not Resolved]
  - Subileus [Not Recovered/Not Resolved]
  - Abdominal pain lower [Not Recovered/Not Resolved]
